FAERS Safety Report 18860205 (Version 2)
Quarter: 2021Q1

REPORT INFORMATION
  Report Type: Report from Study
  Country: CZ (occurrence: CZ)
  Receive Date: 20210208
  Receipt Date: 20210309
  Transmission Date: 20210420
  Serious: Yes (Other)
  Sender: FDA-Public Use
  Company Number: CZ-MYLANLABS-2021M1007668

PATIENT
  Sex: Female

DRUGS (1)
  1. HULIO [Suspect]
     Active Substance: ADALIMUMAB-FKJP
     Indication: RHEUMATOID ARTHRITIS
     Dosage: 40 MILLIGRAM, Q2W
     Route: 058
     Dates: start: 20190617, end: 20200915

REACTIONS (1)
  - Drug ineffective [Unknown]
